FAERS Safety Report 24716929 (Version 2)
Quarter: 2024Q4

REPORT INFORMATION
  Report Type: Other
  Country: NL (occurrence: NL)
  Receive Date: 20241210
  Receipt Date: 20241226
  Transmission Date: 20250115
  Serious: Yes (Other)
  Sender: PL DEVELOPMENTS
  Company Number: NL-P+L Developments of Newyork Corporation-2166811

PATIENT
  Age: 31 Year
  Sex: Female

DRUGS (9)
  1. CETIRIZINE [Suspect]
     Active Substance: CETIRIZINE HYDROCHLORIDE
     Indication: Product used for unknown indication
  2. OMEPRAZOLE [Suspect]
     Active Substance: OMEPRAZOLE
  3. COVID-19 VACCINE NOS [Suspect]
     Active Substance: COVID-19 VACCINE
  4. PREDNISOLONE [Suspect]
     Active Substance: PREDNISOLONE
  5. NIFEDIPINE [Suspect]
     Active Substance: NIFEDIPINE
  6. CANDESARTAN [Suspect]
     Active Substance: CANDESARTAN
  7. METOPROLOL [Suspect]
     Active Substance: METOPROLOL
  8. MYCOPHENOLATE MOFETIL [Suspect]
     Active Substance: MYCOPHENOLATE MOFETIL
  9. TACROLIMUS [Suspect]
     Active Substance: TACROLIMUS

REACTIONS (2)
  - Abortion spontaneous [Unknown]
  - Maternal exposure via partner during pregnancy [Unknown]
